FAERS Safety Report 7700259-9 (Version None)
Quarter: 2011Q3

REPORT INFORMATION
  Report Type: 
  Country: None (occurrence: None)
  Receive Date: 20110816
  Receipt Date: 20110729
  Transmission Date: 20111222
  Serious: Yes (Other)
  Sender: FDA-Public Use
  Company Number: JPI-P-016107

PATIENT
  Age: 49 Year
  Sex: Female
  Weight: 74.8435 kg

DRUGS (3)
  1. XYREM [Suspect]
     Indication: SLEEP DISORDER
     Dosage: SEE IMAGE
     Route: 048
     Dates: start: 20070320, end: 20100101
  2. XYREM [Suspect]
     Indication: SLEEP DISORDER
     Dosage: SEE IMAGE
     Route: 048
     Dates: start: 20100101
  3. UNSPECIFIED MEDICATIONS [Concomitant]

REACTIONS (6)
  - AMNESIA [None]
  - SOMNAMBULISM [None]
  - INCORRECT DOSE ADMINISTERED [None]
  - VOMITING [None]
  - HOT FLUSH [None]
  - NAUSEA [None]
